FAERS Safety Report 25890299 (Version 1)
Quarter: 2025Q4

REPORT INFORMATION
  Report Type: Spontaneous
  Country: CN (occurrence: CN)
  Receive Date: 20251007
  Receipt Date: 20251007
  Transmission Date: 20260117
  Serious: Yes (Other)
  Sender: MERCK SHARP & DOHME LLC
  Company Number: CN-009507513-2334299

PATIENT
  Age: 62 Year
  Sex: Male

DRUGS (2)
  1. PEMBROLIZUMAB [Suspect]
     Active Substance: PEMBROLIZUMAB
     Indication: Hypopharyngeal cancer
     Dosage: 200 MG, EVERY 14 DAYS ON DAY 1
     Route: 041
     Dates: start: 20250830, end: 20250915
  2. CETUXIMAB [Suspect]
     Active Substance: CETUXIMAB
     Indication: Hypopharyngeal cancer
     Dosage: 700 MG, EVERY 14 DAYS ON DAY 1
     Route: 041
     Dates: start: 20250830, end: 20250915

REACTIONS (4)
  - Hepatotoxicity [Recovering/Resolving]
  - Hypotension [Unknown]
  - Product use issue [Unknown]
  - Hyperpyrexia [Recovered/Resolved]

NARRATIVE: CASE EVENT DATE: 20250830
